FAERS Safety Report 5950103-5 (Version None)
Quarter: 2008Q4

REPORT INFORMATION
  Report Type: 
  Country: None (occurrence: None)
  Receive Date: 20081112
  Receipt Date: 20081031
  Transmission Date: 20090506
  Serious: Yes (Death)
  Sender: FDA-Public Use
  Company Number: IT-ELI_LILLY_AND_COMPANY-IT200808002791

PATIENT

DRUGS (1)
  1. GEMZAR [Suspect]
     Indication: NON-SMALL CELL LUNG CANCER
     Dosage: 2000 MG, BY PROLONGED INFUSION OF TWO HOURS
     Route: 065
     Dates: start: 20030115, end: 20030115

REACTIONS (1)
  - HAEMOPTYSIS [None]
